FAERS Safety Report 15548462 (Version 4)
Quarter: 2019Q3

REPORT INFORMATION
  Report Type: Report from Study
  Country: JP (occurrence: JP)
  Receive Date: 20181025
  Receipt Date: 20190821
  Transmission Date: 20191004
  Serious: Yes (Life-Threatening, Hospitalization, Other)
  Sender: FDA-Public Use
  Company Number: JP-ALEXION PHARMACEUTICALS INC-A201813543

PATIENT

DRUGS (62)
  1. NEORAL [Suspect]
     Active Substance: CYCLOSPORINE
     Indication: BONE MARROW FAILURE
     Dosage: 150 MG, DAILY
     Route: 065
     Dates: start: 20181121, end: 20181217
  2. CEFTRIAXONE SODIUM. [Suspect]
     Active Substance: CEFTRIAXONE SODIUM
     Indication: BEHCET^S SYNDROME
     Dosage: 1 G, DAILY
     Route: 065
     Dates: start: 20181217, end: 20181219
  3. CLINDAMYCIN. [Suspect]
     Active Substance: CLINDAMYCIN
     Indication: BEHCET^S SYNDROME
     Dosage: 1200 MG, SINGLE
     Route: 065
     Dates: start: 20181220, end: 20181220
  4. BIOFERMIN R [Concomitant]
     Active Substance: DIETARY SUPPLEMENT\PROBIOTICS
     Indication: PRODUCT USED FOR UNKNOWN INDICATION
     Dosage: 4 DF, DAILY
     Route: 065
     Dates: end: 20180703
  5. BIOFERMIN R [Concomitant]
     Active Substance: DIETARY SUPPLEMENT\PROBIOTICS
     Dosage: 4 DF, DAILY
     Route: 065
     Dates: start: 20180829, end: 20181217
  6. SOLU-CORTEF [Concomitant]
     Active Substance: HYDROCORTISONE SODIUM SUCCINATE
     Dosage: 100 MG, SINGLE
     Route: 065
     Dates: start: 20181121, end: 20181121
  7. SOLU-CORTEF [Concomitant]
     Active Substance: HYDROCORTISONE SODIUM SUCCINATE
     Dosage: 100 MG, SINGLE
     Route: 065
     Dates: start: 20181225, end: 20181225
  8. SOLU-CORTEF [Concomitant]
     Active Substance: HYDROCORTISONE SODIUM SUCCINATE
     Dosage: 100 MG, SINGLE
     Route: 065
     Dates: start: 20181230, end: 20181230
  9. BFLUID [Concomitant]
     Active Substance: AMINO ACIDS\DEXTROSE\ELECTROLYTES NOS\VITAMINS
     Indication: PRODUCT USED FOR UNKNOWN INDICATION
     Dosage: 1000 ML, SINGLE
     Route: 065
     Dates: start: 20181228, end: 20181228
  10. CEFEPIME [Concomitant]
     Active Substance: CEFEPIME HYDROCHLORIDE
     Indication: PRODUCT USED FOR UNKNOWN INDICATION
     Dosage: 2 G, DAILY
     Route: 065
     Dates: start: 20181229, end: 20181229
  11. HEPAFLUSH [Concomitant]
     Active Substance: HEPARIN SODIUM
     Dosage: UNK, BID
     Route: 065
     Dates: start: 20181231, end: 20181231
  12. HEPAFLUSH [Concomitant]
     Active Substance: HEPARIN SODIUM
     Dosage: UNK, BID
     Route: 065
     Dates: start: 20190103, end: 20190103
  13. MECOBALAMIN [Concomitant]
     Active Substance: METHYLCOBALAMIN
     Indication: PRODUCT USED FOR UNKNOWN INDICATION
     Dosage: 1500 ?G, DAILY
     Route: 065
     Dates: start: 20180806
  14. PRANLUKAST [Concomitant]
     Active Substance: PRANLUKAST
     Indication: PRODUCT USED FOR UNKNOWN INDICATION
     Dosage: 450 MG, DAILY
     Route: 065
     Dates: start: 20181010, end: 20181019
  15. SOLU-CORTEF [Concomitant]
     Active Substance: HYDROCORTISONE SODIUM SUCCINATE
     Dosage: 100 MG, SINGLE
     Route: 065
     Dates: start: 20181213, end: 20181213
  16. CEFEPIME [Concomitant]
     Active Substance: CEFEPIME HYDROCHLORIDE
     Dosage: 2 G, DAILY
     Route: 065
     Dates: start: 20190106, end: 20190106
  17. SOLIRIS [Suspect]
     Active Substance: ECULIZUMAB
     Indication: PAROXYSMAL NOCTURNAL HAEMOGLOBINURIA
     Dosage: 600 MG, QW
     Route: 042
     Dates: start: 20110726, end: 20110816
  18. CLINDAMYCIN. [Suspect]
     Active Substance: CLINDAMYCIN
     Dosage: 1200 MG, DAILY
     Route: 065
     Dates: start: 20181225, end: 20181226
  19. ZANTAC [Concomitant]
     Active Substance: RANITIDINE HYDROCHLORIDE
     Indication: PRODUCT USED FOR UNKNOWN INDICATION
     Dosage: 200 MG, DAILY
     Route: 065
     Dates: end: 20180703
  20. ZANTAC [Concomitant]
     Active Substance: RANITIDINE HYDROCHLORIDE
     Dosage: 200 MG, DAILY
     Route: 065
     Dates: start: 20180829, end: 20181217
  21. ZANTAC [Concomitant]
     Active Substance: RANITIDINE HYDROCHLORIDE
     Dosage: 200 MG, DAILY
     Route: 065
     Dates: start: 20190104
  22. LUNABELL [Concomitant]
     Active Substance: ETHINYL ESTRADIOL\NORETHINDRONE
     Indication: PRODUCT USED FOR UNKNOWN INDICATION
     Dosage: 1 DF, DAILY
     Route: 065
     Dates: start: 20180828, end: 20180904
  23. VITAMEDIN                          /00274301/ [Concomitant]
     Active Substance: BENFOTIAMINE\CYANOCOBALAMIN\PYRIDOXINE HYDROCHLORIDE
     Dosage: UNK, SINGLE
     Route: 065
     Dates: start: 20181225, end: 20181225
  24. CEFEPIME [Concomitant]
     Active Substance: CEFEPIME HYDROCHLORIDE
     Dosage: 4 G, DAILY
     Route: 065
     Dates: start: 20181230, end: 20190105
  25. NEORAL [Suspect]
     Active Substance: CYCLOSPORINE
     Indication: CONDITION AGGRAVATED
  26. CALONAL [Concomitant]
     Active Substance: ACETAMINOPHEN
     Dosage: 200 MG, PRN
     Route: 065
     Dates: start: 20180829, end: 20181217
  27. MOHRUS L [Concomitant]
     Active Substance: KETOPROFEN
     Indication: PRODUCT USED FOR UNKNOWN INDICATION
     Dosage: PRN
     Route: 065
     Dates: end: 20190508
  28. STICKZENOL A [Concomitant]
     Indication: PRODUCT USED FOR UNKNOWN INDICATION
     Dosage: PRN
     Route: 065
     Dates: end: 20180703
  29. SHINLUCK [Concomitant]
     Active Substance: SODIUM PICOSULFATE
     Indication: PRODUCT USED FOR UNKNOWN INDICATION
     Dosage: PRN
     Route: 065
     Dates: start: 20181229
  30. SOLDEM 3A [Concomitant]
     Active Substance: CARBOHYDRATES\POTASSIUM CHLORIDE\SODIUM CHLORIDE\SODIUM LACTATE
     Dosage: UNK
     Route: 065
     Dates: start: 20181217, end: 20181220
  31. SOLU-CORTEF [Concomitant]
     Active Substance: HYDROCORTISONE SODIUM SUCCINATE
     Indication: PROPHYLAXIS
     Dosage: 100 MG, SINGLE
     Route: 065
     Dates: start: 20181017, end: 20181017
  32. INTRALIPOS [Concomitant]
     Active Substance: SOYBEAN OIL
     Indication: PRODUCT USED FOR UNKNOWN INDICATION
     Dosage: 200 ML, SINGLE
     Route: 065
     Dates: start: 20181225, end: 20181225
  33. HEPAFLUSH [Concomitant]
     Active Substance: HEPARIN SODIUM
     Indication: PROPHYLAXIS
     Dosage: UNK, QD
     Route: 065
     Dates: start: 20181220, end: 20181220
  34. HEPAFLUSH [Concomitant]
     Active Substance: HEPARIN SODIUM
     Dosage: UNK, BID
     Route: 065
     Dates: start: 20190102, end: 20190102
  35. HEPAFLUSH [Concomitant]
     Active Substance: HEPARIN SODIUM
     Dosage: UNK, TID
     Route: 065
     Dates: start: 20190104, end: 20190104
  36. SOLIRIS [Suspect]
     Active Substance: ECULIZUMAB
     Dosage: 900 MG, Q2W
     Route: 042
     Dates: start: 20110823, end: 20190117
  37. CALONAL [Concomitant]
     Active Substance: ACETAMINOPHEN
     Dosage: 200 MG, PRN
     Route: 065
     Dates: start: 20190104
  38. BIOFERMIN R [Concomitant]
     Active Substance: DIETARY SUPPLEMENT\PROBIOTICS
     Dosage: 4 DF, DAILY
     Route: 065
     Dates: start: 20190104
  39. BETAHISTINE MESILATE [Concomitant]
     Active Substance: BETAHISTINE MESILATE
     Indication: PRODUCT USED FOR UNKNOWN INDICATION
     Dosage: 18 MG, DAILY
     Route: 065
     Dates: start: 20180806, end: 20181213
  40. MAGMITT [Concomitant]
     Active Substance: MAGNESIUM OXIDE
     Indication: PRODUCT USED FOR UNKNOWN INDICATION
     Dosage: 1980 MG, DAILY
     Route: 065
     Dates: start: 20181229, end: 20190103
  41. SOLU-CORTEF [Concomitant]
     Active Substance: HYDROCORTISONE SODIUM SUCCINATE
     Dosage: 100 MG, SINGLE
     Route: 065
     Dates: start: 20190111, end: 20190111
  42. LACTEC                             /00490001/ [Concomitant]
     Indication: PRODUCT USED FOR UNKNOWN INDICATION
     Dosage: 500 ML, SINGLE
     Route: 065
     Dates: start: 20181215, end: 20181215
  43. HEPAFLUSH [Concomitant]
     Active Substance: HEPARIN SODIUM
     Dosage: UNK, QD
     Route: 065
     Dates: start: 20181225, end: 20181225
  44. VITAMEDIN                          /00274301/ [Concomitant]
     Active Substance: BENFOTIAMINE\CYANOCOBALAMIN\PYRIDOXINE HYDROCHLORIDE
     Indication: PRODUCT USED FOR UNKNOWN INDICATION
     Dosage: UNK, SINGLE
     Route: 065
     Dates: start: 20180805, end: 20180805
  45. HEPAFLUSH [Concomitant]
     Active Substance: HEPARIN SODIUM
     Dosage: UNK, BID
     Route: 065
     Dates: start: 20181229, end: 20181231
  46. CALONAL [Concomitant]
     Active Substance: ACETAMINOPHEN
     Indication: PRODUCT USED FOR UNKNOWN INDICATION
     Dosage: 200 MG, PRN
     Route: 065
     Dates: end: 20180703
  47. LOXOPROFEN [Concomitant]
     Active Substance: LOXOPROFEN
     Indication: PRODUCT USED FOR UNKNOWN INDICATION
     Dosage: 60 MG, PRN
     Route: 065
     Dates: end: 20190508
  48. LOXOPROFEN NA [Concomitant]
     Active Substance: LOXOPROFEN SODIUM
     Indication: PRODUCT USED FOR UNKNOWN INDICATION
     Dosage: PRN
     Route: 065
     Dates: start: 20180509, end: 20180703
  49. ATP                                /00020001/ [Concomitant]
     Indication: PRODUCT USED FOR UNKNOWN INDICATION
     Dosage: 120 MG, DAILY
     Route: 065
     Dates: start: 20180806
  50. SOLDEM 3A [Concomitant]
     Active Substance: CARBOHYDRATES\POTASSIUM CHLORIDE\SODIUM CHLORIDE\SODIUM LACTATE
     Indication: PRODUCT USED FOR UNKNOWN INDICATION
     Dosage: UNK, SINGLE
     Route: 065
     Dates: start: 20180805, end: 20180805
  51. SOLDEM 3A [Concomitant]
     Active Substance: CARBOHYDRATES\POTASSIUM CHLORIDE\SODIUM CHLORIDE\SODIUM LACTATE
     Dosage: UNK, SINGLE
     Route: 065
     Dates: start: 20181225, end: 20181225
  52. SOLU-CORTEF [Concomitant]
     Active Substance: HYDROCORTISONE SODIUM SUCCINATE
     Dosage: 100 MG, SINGLE
     Route: 065
     Dates: start: 20190107, end: 20190107
  53. BFLUID [Concomitant]
     Active Substance: AMINO ACIDS\DEXTROSE\ELECTROLYTES NOS\VITAMINS
     Dosage: 500 ML, DAILY
     Route: 065
     Dates: start: 20181229, end: 20181230
  54. CLINDAMYCIN. [Suspect]
     Active Substance: CLINDAMYCIN
     Dosage: 600 MG, DAILY
     Route: 065
     Dates: start: 20181227, end: 20181229
  55. LOXOPROFEN [Concomitant]
     Active Substance: LOXOPROFEN
     Dosage: 60 MG, PRN
     Route: 065
     Dates: start: 20190115
  56. VITAMEDIN                          /00274301/ [Concomitant]
     Active Substance: BENFOTIAMINE\CYANOCOBALAMIN\PYRIDOXINE HYDROCHLORIDE
     Dosage: UNK
     Route: 065
     Dates: start: 20181217, end: 20181220
  57. SOLU-CORTEF [Concomitant]
     Active Substance: HYDROCORTISONE SODIUM SUCCINATE
     Dosage: 100 MG, SINGLE
     Route: 065
     Dates: start: 20181107, end: 20181107
  58. SOLU-CORTEF [Concomitant]
     Active Substance: HYDROCORTISONE SODIUM SUCCINATE
     Dosage: 100 MG, SINGLE
     Route: 065
     Dates: start: 20181127, end: 20181127
  59. SOLU-CORTEF [Concomitant]
     Active Substance: HYDROCORTISONE SODIUM SUCCINATE
     Dosage: 100 MG, SINGLE
     Route: 065
     Dates: start: 20181205, end: 20181205
  60. INTRALIPOS [Concomitant]
     Active Substance: SOYBEAN OIL
     Dosage: 200 ML, SINGLE
     Route: 065
     Dates: start: 20181228, end: 20190104
  61. HEPAFLUSH [Concomitant]
     Active Substance: HEPARIN SODIUM
     Dosage: UNK, QD
     Route: 065
     Dates: start: 20181230, end: 20181230
  62. HEPAFLUSH [Concomitant]
     Active Substance: HEPARIN SODIUM
     Dosage: UNK, QD
     Route: 065
     Dates: start: 20190101, end: 20190101

REACTIONS (11)
  - Haemolysis [Recovered/Resolved]
  - Dry skin [Recovered/Resolved]
  - Iron overload [Not Recovered/Not Resolved]
  - Vertigo [Recovered/Resolved]
  - Menorrhagia [Not Recovered/Not Resolved]
  - Infection [Unknown]
  - Constipation [Recovered/Resolved]
  - Pseudomembranous colitis [Recovered/Resolved]
  - Behcet^s syndrome [Recovered/Resolved]
  - Bone marrow failure [Not Recovered/Not Resolved]
  - Condition aggravated [Not Recovered/Not Resolved]

NARRATIVE: CASE EVENT DATE: 20180718
